FAERS Safety Report 5476961-9 (Version None)
Quarter: 2007Q4

REPORT INFORMATION
  Report Type: 
  Country: None (occurrence: None)
  Receive Date: 20071002
  Receipt Date: 20071002
  Transmission Date: 20080405
  Serious: No
  Sender: FDA-Public Use
  Company Number: None

PATIENT
  Age: 36 Year
  Sex: Male
  Weight: 99.7913 kg

DRUGS (1)
  1. MEFLOQUINE HYDROCHLORIDE [Suspect]
     Indication: MALARIA PROPHYLAXIS
     Dosage: 1 TABLET  WEEKLY  PO
     Route: 048
     Dates: start: 20070923

REACTIONS (1)
  - PARAESTHESIA [None]
